FAERS Safety Report 16318614 (Version 1)
Quarter: 2019Q2

REPORT INFORMATION
  Report Type: Spontaneous
  Country: US (occurrence: US)
  Receive Date: 20190516
  Receipt Date: 20190516
  Transmission Date: 20190711
  Serious: No
  Sender: FDA-Public Use
  Company Number: US-CIPLA LTD.-2019US01146

PATIENT

DRUGS (4)
  1. DICLOFENAC [Suspect]
     Active Substance: DICLOFENAC
     Dosage: 4 GRAM, TID (THREE APPLICATIONS A DAY) ON EACH FOOT
     Route: 061
     Dates: start: 20190126, end: 20190130
  2. DICLOFENAC [Suspect]
     Active Substance: DICLOFENAC
     Indication: PAIN IN EXTREMITY
     Dosage: 4 GRAM, ON EACH FOOT, ONE APPLICATION, IN THE EVENING
     Route: 061
     Dates: start: 20190125
  3. LISINOPRIL. [Concomitant]
     Active Substance: LISINOPRIL
     Indication: HYPERTENSION
     Dosage: 20 MILLIGRAM, BID (TWICE A DAY) FOR 20 YEARS
     Route: 065
  4. AMLODIPINE [Concomitant]
     Active Substance: AMLODIPINE BESYLATE
     Indication: HYPERTENSION
     Dosage: 5 MILLIGRAM, QD (ONCE A DAY) FOR 20 YEARS
     Route: 065

REACTIONS (1)
  - Incorrect dose administered [Unknown]
